FAERS Safety Report 5843760-5 (Version None)
Quarter: 2008Q3

REPORT INFORMATION
  Report Type: 
  Country: None (occurrence: None)
  Receive Date: 20080813
  Receipt Date: 20080702
  Transmission Date: 20090109
  Serious: No
  Sender: FDA-Public Use
  Company Number: US-BRISTOL-MYERS SQUIBB COMPANY-14248231

PATIENT
  Age: 57 Year
  Sex: Female

DRUGS (3)
  1. IXEMPRA KIT [Suspect]
     Indication: BREAST CANCER METASTATIC
     Dates: start: 20080623, end: 20080623
  2. BENADRYL [Concomitant]
     Indication: PREMEDICATION
  3. ZANTAC [Concomitant]
     Indication: PREMEDICATION

REACTIONS (4)
  - NAUSEA [None]
  - PHARYNGEAL ULCERATION [None]
  - STOMATITIS [None]
  - VAGINAL ULCERATION [None]
